FAERS Safety Report 10876415 (Version 1)
Quarter: 2015Q1

REPORT INFORMATION
  Report Type: Spontaneous
  Country: BR (occurrence: BR)
  Receive Date: 20150228
  Receipt Date: 20150228
  Transmission Date: 20150721
  Serious: Yes (Other)
  Sender: FDA-Public Use
  Company Number: PHHY2015BR023171

PATIENT
  Age: 39 Year
  Sex: Male

DRUGS (2)
  1. VANDETANIB. [Concomitant]
     Active Substance: VANDETANIB
     Indication: PRODUCT USED FOR UNKNOWN INDICATION
     Route: 065
  2. EVEROLIMUS [Suspect]
     Active Substance: EVEROLIMUS
     Indication: PRODUCT USED FOR UNKNOWN INDICATION
     Dosage: UNK, QD
     Route: 065

REACTIONS (7)
  - Bone pain [Recovering/Resolving]
  - Concomitant disease progression [Unknown]
  - Bone lesion [Unknown]
  - Mucosal inflammation [Unknown]
  - Arthralgia [Unknown]
  - Diarrhoea [Recovering/Resolving]
  - Spinal pain [Recovering/Resolving]
